FAERS Safety Report 5917053-1 (Version None)
Quarter: 2008Q4

REPORT INFORMATION
  Report Type: 
  Country: None (occurrence: None)
  Receive Date: 20081014
  Receipt Date: 20081002
  Transmission Date: 20090506
  Serious: Yes (Hospitalization)
  Sender: FDA-Public Use
  Company Number: US-JNJFOC-20081001316

PATIENT
  Age: 40 Year
  Sex: Female

DRUGS (8)
  1. DURAGESIC-100 [Suspect]
     Indication: DRUG USE FOR UNKNOWN INDICATION
     Route: 062
  2. PERCOCET [Suspect]
     Indication: BREAKTHROUGH PAIN
     Route: 065
  3. ACTIQ [Suspect]
     Indication: NECK PAIN
     Route: 048
  4. ACTIQ [Suspect]
     Indication: BACK PAIN
     Route: 048
  5. KADIAN [Suspect]
     Indication: DRUG USE FOR UNKNOWN INDICATION
     Route: 065
  6. GABITRIL [Concomitant]
     Route: 065
  7. TOPAMAX [Concomitant]
     Route: 065
  8. LEXAPRO [Concomitant]
     Route: 065

REACTIONS (8)
  - ATAXIA [None]
  - CONVULSION [None]
  - DENTAL CARIES [None]
  - DRUG WITHDRAWAL SYNDROME [None]
  - FALL [None]
  - HALLUCINATION [None]
  - PAIN [None]
  - SPINAL DISORDER [None]
